FAERS Safety Report 12175564 (Version 1)
Quarter: 2016Q1

REPORT INFORMATION
  Report Type: Spontaneous
  Country: JP (occurrence: JP)
  Receive Date: 20160314
  Receipt Date: 20160314
  Transmission Date: 20160526
  Serious: Yes (Other)
  Sender: FDA-Public Use
  Company Number: JP-BAYER-2016-043414

PATIENT
  Age: 70 Year
  Sex: Male
  Weight: 81.5 kg

DRUGS (3)
  1. ACETYLSALICYLIC ACID({=100 MG) [Suspect]
     Active Substance: ASPIRIN
     Indication: ESSENTIAL THROMBOCYTHAEMIA
     Dosage: UNK
     Route: 048
  2. HYDROXYUREA. [Concomitant]
     Active Substance: HYDROXYUREA
     Indication: ESSENTIAL THROMBOCYTHAEMIA
     Route: 048
  3. TICLOPIDINE HYDROCHLORIDE. [Interacting]
     Active Substance: TICLOPIDINE HYDROCHLORIDE
     Indication: PERIPHERAL ARTERIAL OCCLUSIVE DISEASE
     Route: 048

REACTIONS (6)
  - Haemorrhagic diathesis [None]
  - Peritonitis [None]
  - Abscess [None]
  - Product use issue [None]
  - Labelled drug-drug interaction medication error [None]
  - Platelet dysfunction [None]
